FAERS Safety Report 20454284 (Version 12)
Quarter: 2023Q4

REPORT INFORMATION
  Report Type: Report from Study
  Country: US (occurrence: US)
  Receive Date: 20220210
  Receipt Date: 20231030
  Transmission Date: 20240109
  Serious: Yes (Other)
  Sender: FDA-Public Use
  Company Number: US-002147023-NVSC2022US028730

PATIENT
  Sex: Male

DRUGS (1)
  1. KESIMPTA [Suspect]
     Active Substance: OFATUMUMAB
     Indication: Multiple sclerosis
     Dosage: UNK UNK, QMO
     Route: 058
     Dates: start: 20211020

REACTIONS (17)
  - Glaucoma [Unknown]
  - Intraocular pressure decreased [Unknown]
  - Multiple sclerosis [Not Recovered/Not Resolved]
  - Secondary progressive multiple sclerosis [Unknown]
  - Gait disturbance [Unknown]
  - Paresis [Unknown]
  - Hypoaesthesia [Unknown]
  - Fall [Unknown]
  - Pruritus [Unknown]
  - Muscle spasms [Unknown]
  - COVID-19 [Recovered/Resolved]
  - Dry skin [Unknown]
  - Cognitive disorder [Unknown]
  - Fatigue [Unknown]
  - Injection site discomfort [Unknown]
  - Product preparation error [Recovered/Resolved]
  - Drug ineffective [Unknown]
